FAERS Safety Report 13934570 (Version 1)
Quarter: 2017Q3

REPORT INFORMATION
  Report Type: Spontaneous
  Country: US (occurrence: US)
  Receive Date: 20170905
  Receipt Date: 20170905
  Transmission Date: 20171127
  Serious: Yes (Other)
  Sender: FDA-Public Use
  Company Number: PHEH2017US027851

PATIENT
  Sex: Female

DRUGS (3)
  1. FASLODEX [Suspect]
     Active Substance: FULVESTRANT
     Indication: BREAST CANCER
     Dosage: UNK, QMO
     Route: 065
  2. IBRANCE [Suspect]
     Active Substance: PALBOCICLIB
     Indication: BREAST CANCER
     Dosage: 125 MG, QD
     Route: 048
     Dates: start: 20150326
  3. LETROZOLE. [Suspect]
     Active Substance: LETROZOLE
     Indication: BREAST CANCER
     Dosage: 2.5 MG, QD
     Route: 065

REACTIONS (4)
  - Full blood count abnormal [Recovered/Resolved]
  - Nausea [Unknown]
  - Leukopenia [Unknown]
  - Vomiting [Unknown]
